FAERS Safety Report 5576689-0 (Version None)
Quarter: 2007Q4

REPORT INFORMATION
  Report Type: 
  Country: None (occurrence: None)
  Receive Date: 20071228
  Receipt Date: 20071104
  Transmission Date: 20080405
  Serious: Yes (Death, Other)
  Sender: FDA-Public Use
  Company Number: US-PURDUE-USA_2007_0030838

PATIENT
  Age: 36 Year
  Sex: Female

DRUGS (1)
  1. OXYCONTIN [Suspect]
     Indication: HEADACHE
     Dosage: 40 MG, UNK
     Dates: start: 20000319, end: 20010401

REACTIONS (4)
  - BLOOD PRESSURE ABNORMAL [None]
  - COLLAPSE OF LUNG [None]
  - COMPLETED SUICIDE [None]
  - LOSS OF CONSCIOUSNESS [None]
